FAERS Safety Report 10344812 (Version 1)
Quarter: 2014Q3

REPORT INFORMATION
  Report Type: Spontaneous
  Country: US (occurrence: None)
  Receive Date: 20140723
  Receipt Date: 20140723
  Transmission Date: 20150326
  Serious: No
  Sender: FDA-Public Use
  Company Number: CC14-0472

PATIENT
  Age: 86 Year
  Sex: Female

DRUGS (1)
  1. CICLOPIROX. [Suspect]
     Active Substance: CICLOPIROX
     Indication: NAIL INFECTION
     Dosage: APPLY TO CUTICLE
     Dates: start: 20140116

REACTIONS (4)
  - Wrong technique in drug usage process [None]
  - Erythema [None]
  - Pain in extremity [None]
  - Skin fissures [None]

NARRATIVE: CASE EVENT DATE: 2014
